FAERS Safety Report 19861077 (Version 2)
Quarter: 2021Q4

REPORT INFORMATION
  Report Type: Report from Study
  Country: EG (occurrence: EG)
  Receive Date: 20210921
  Receipt Date: 20211123
  Transmission Date: 20220303
  Serious: Yes (Hospitalization, Other)
  Sender: FDA-Public Use
  Company Number: EG-NOVARTISPH-NVSC2021EG209933

PATIENT
  Age: 52 Year
  Sex: Male

DRUGS (8)
  1. VALSARTAN [Suspect]
     Active Substance: VALSARTAN
     Indication: Cardiac failure
     Dosage: 1 DF, QD, 40 MG, QD, STARTED MAY OR JUN 2020, TAREG ONE TABLET IN THE MORNING AND HALF TABLET AT NIG
     Route: 048
  2. VALSARTAN [Suspect]
     Active Substance: VALSARTAN
     Dosage: 0.5 DF, BID, 80 MG, STARTED MAY OR JUN 2020, TREATMENT PERIOD WAS 3-4 MONTHS
     Route: 048
     Dates: end: 202009
  3. ATORVASTATIN CALCIUM [Concomitant]
     Active Substance: ATORVASTATIN CALCIUM
     Indication: Product used for unknown indication
     Dosage: 1 DF, QD, BEFORE BEDTIME
     Route: 065
  4. CARVEDILOL [Concomitant]
     Active Substance: CARVEDILOL
     Indication: Product used for unknown indication
     Dosage: 2 DF, BID
     Route: 065
  5. ALDACTONE [Concomitant]
     Active Substance: SPIRONOLACTONE
     Indication: Product used for unknown indication
     Dosage: 2 DF, AFTER LUNCH
     Route: 065
  6. ASPIRIN [Concomitant]
     Active Substance: ASPIRIN
     Indication: Product used for unknown indication
     Dosage: 2 DF, AFTER MEAL
     Route: 065
  7. CONTROLOC [Concomitant]
     Active Substance: PANTOPRAZOLE SODIUM
     Indication: Product used for unknown indication
     Dosage: 1 DF, BEFORE DINNER
     Route: 065
  8. DINITRA [Concomitant]
     Indication: Product used for unknown indication
     Dosage: WHEN NEEDED
     Route: 065

REACTIONS (5)
  - Dyspnoea [Not Recovered/Not Resolved]
  - Abdominal discomfort [Not Recovered/Not Resolved]
  - Diaphragmatic disorder [Not Recovered/Not Resolved]
  - Ejection fraction decreased [Not Recovered/Not Resolved]
  - Drug ineffective [Not Recovered/Not Resolved]

NARRATIVE: CASE EVENT DATE: 20210901
